FAERS Safety Report 9358852 (Version 1)
Quarter: 2013Q2

REPORT INFORMATION
  Report Type: Report from Study
  Country: DE (occurrence: DE)
  Receive Date: 20130620
  Receipt Date: 20130620
  Transmission Date: 20140414
  Serious: Yes (Hospitalization)
  Sender: FDA-Public Use
  Company Number: DE-TEVA-412527ISR

PATIENT
  Age: 53 Year
  Sex: Female

DRUGS (3)
  1. PACLITAXEL [Suspect]
     Indication: OVARIAN CANCER
     Dosage: 294 MILLIGRAM DAILY; LAST DOSE PRIOR TO SAE: 15-MAY-2013
     Route: 042
     Dates: start: 20130423
  2. CARBOPLATIN [Suspect]
     Indication: OVARIAN CANCER
     Dosage: 576.98 MILLIGRAM DAILY; LAST DOSE PRIOR TO SAE: 15-MAY-2013
     Route: 042
     Dates: start: 20130423
  3. BEVACIZUMAB [Suspect]
     Indication: OVARIAN CANCER
     Dosage: 840 MILLIGRAM DAILY; LAST DOSE PRIOR TO SAE: 15-MAY-2013
     Route: 042
     Dates: start: 20130515

REACTIONS (1)
  - Infected lymphocele [Recovering/Resolving]
